FAERS Safety Report 4731183-1 (Version None)
Quarter: 2005Q3

REPORT INFORMATION
  Report Type: 
  Country: None (occurrence: None)
  Receive Date: 20050728
  Receipt Date: 20050712
  Transmission Date: 20060218
  Serious: Yes (Other)
  Sender: FDA-Public Use
  Company Number: 2005082669

PATIENT
  Age: 26 Year
  Sex: Male

DRUGS (4)
  1. UNASYN [Suspect]
     Indication: PNEUMONIA
     Dosage: 3 GRAM INTRAVENOUS; SEE IMAGE
     Route: 042
     Dates: start: 20050518, end: 20050522
  2. UNASYN [Suspect]
     Indication: PNEUMONIA
     Dosage: 3 GRAM INTRAVENOUS; SEE IMAGE
     Route: 042
     Dates: start: 20050527, end: 20050529
  3. PILENZEL (PIRENZEPINE) [Suspect]
     Indication: GASTRIC ULCER
     Dosage: 20 MG, INTRAVENOUS
     Route: 042
     Dates: start: 20050527
  4. GASTROZEPIN [Concomitant]

REACTIONS (3)
  - GASTRIC ULCER [None]
  - NEUTROPHIL COUNT DECREASED [None]
  - WHITE BLOOD CELL COUNT DECREASED [None]
